FAERS Safety Report 13131879 (Version 2)
Quarter: 2018Q3

REPORT INFORMATION
  Report Type: Report from Study
  Country: US (occurrence: US)
  Receive Date: 20170119
  Receipt Date: 20180808
  Transmission Date: 20181010
  Serious: Yes (Hospitalization)
  Sender: FDA-Public Use
  Company Number: US-ACTELION-A-NJ2017-148591

PATIENT
  Age: 58 Year
  Sex: Female

DRUGS (2)
  1. ADCIRCA [Concomitant]
     Active Substance: TADALAFIL
  2. OPSUMIT [Suspect]
     Active Substance: MACITENTAN
     Indication: PULMONARY HYPERTENSION
     Dosage: 10 MG, QD
     Route: 048
     Dates: start: 20160809

REACTIONS (5)
  - Heart rate decreased [Unknown]
  - Chest pain [Unknown]
  - Respiration abnormal [Unknown]
  - Cardiac pacemaker insertion [Unknown]
  - Headache [Unknown]

NARRATIVE: CASE EVENT DATE: 201612
